FAERS Safety Report 5276451-2 (Version None)
Quarter: 2007Q1

REPORT INFORMATION
  Report Type: 
  Country: None (occurrence: None)
  Receive Date: 20061213
  Receipt Date: 20040205
  Transmission Date: 20070707
  Serious: Yes (Hospitalization)
  Sender: FDA-Public Use
  Company Number: 2004UW02121

PATIENT
  Age: 63 Year
  Sex: Female

DRUGS (16)
  1. SEROQUEL [Suspect]
     Dosage: 150 MG HS
  2. SEROQUEL [Suspect]
     Dosage: 100 MG QAM
  3. PROTONIX [Concomitant]
  4. LORTAB [Concomitant]
  5. LEVAQUIN [Concomitant]
  6. SINEMET CR [Suspect]
     Dosage: 25/100
  7. CALCIUM [Concomitant]
  8. DARVOCET [Concomitant]
  9. MOTRIN [Concomitant]
  10. EFFEXOR [Concomitant]
  11. ZOCOR [Concomitant]
  12. ATIVAN [Concomitant]
  13. VITAMIN CAP [Concomitant]
  14. ARTHRITIS BAYER TIMED RELEASE ASPIRIN [Concomitant]
  15. SURFAK [Concomitant]
  16. SIMETHICONE [Concomitant]

REACTIONS (1)
  - NEUROLEPTIC MALIGNANT SYNDROME [None]
